FAERS Safety Report 8770330 (Version 3)
Quarter: 2012Q4

REPORT INFORMATION
  Report Type: 
  Country: JP (occurrence: JP)
  Receive Date: 20120906
  Receipt Date: 20121126
  Transmission Date: 20130627
  Serious: Yes (Hospitalization, Other)
  Sender: FDA-Public Use
  Company Number: JP-BAXTER-2012BAX015545

PATIENT
  Age: 0 Year
  Sex: Male
  Weight: 9.4 kg

DRUGS (3)
  1. ADVATE 250 [Suspect]
     Indication: HEMOSTASIS
     Route: 042
     Dates: start: 20120702
  2. ADVATE 250 [Suspect]
     Indication: INTRACRANIAL HEMORRHAGE
     Route: 042
     Dates: start: 20120621, end: 20120628
  3. ADVATE 250 [Suspect]
     Indication: HEMOPHILIA A
     Route: 042
     Dates: start: 20120213

REACTIONS (3)
  - Factor VIII inhibition [Unknown]
  - Haemorrhage intracranial [Recovered/Resolved]
  - Convulsion [Recovered/Resolved]
